FAERS Safety Report 5090372-X (Version None)
Quarter: 2006Q3

REPORT INFORMATION
  Report Type: 
  Country: None (occurrence: None)
  Receive Date: 20060823
  Receipt Date: 20060817
  Transmission Date: 20061208
  Serious: Yes (Congenital Anomaly)
  Sender: FDA-Public Use
  Company Number: 008373

PATIENT
  Sex: Male

DRUGS (6)
  1. DIDANOSINE [Suspect]
     Indication: DRUG USE FOR UNKNOWN INDICATION
     Dosage: TRANSPLACENTAL
     Route: 064
  2. LAMIVUDINE [Suspect]
     Indication: DRUG USE FOR UNKNOWN INDICATION
     Dosage: TRANSPLACENTAL
     Route: 064
  3. NELFINAVIR (NELFINAVIR) [Suspect]
     Indication: DRUG USE FOR UNKNOWN INDICATION
     Dosage: TRANSPLACENTAL
     Route: 064
  4. ZIDOVUDINE [Suspect]
     Indication: DRUG USE FOR UNKNOWN INDICATION
  5. RITONAVIR (RITONAVIR) [Suspect]
     Indication: DRUG USE FOR UNKNOWN INDICATION
     Dosage: TRANSPLACENTAL
     Route: 064
  6. EFAVIRENZ [Suspect]
     Indication: DRUG USE FOR UNKNOWN INDICATION
     Dosage: TRANSPLACENTAL
     Route: 064

REACTIONS (3)
  - CHORDEE [None]
  - DRUG EXPOSURE DURING PREGNANCY [None]
  - HYPOSPADIAS [None]
